FAERS Safety Report 24385023 (Version 1)
Quarter: 2024Q3

REPORT INFORMATION
  Report Type: Spontaneous
  Country: US (occurrence: None)
  Receive Date: 20240930
  Receipt Date: 20240930
  Transmission Date: 20241017
  Serious: No
  Sender: Public
  Company Number: None

PATIENT
  Sex: Female

DRUGS (8)
  1. OSELTAMIVIR [Suspect]
     Active Substance: OSELTAMIVIR
     Indication: Influenza
     Dates: start: 20240619, end: 20240620
  2. BENZONATATE [Concomitant]
     Active Substance: BENZONATATE
  3. FLUTICASONE [Concomitant]
     Active Substance: FLUTICASONE
  4. CODEINE PHOSPHATE\GUAIFENESIN [Concomitant]
     Active Substance: CODEINE PHOSPHATE\GUAIFENESIN
  5. DEXMETHYLPHENIDATE [Concomitant]
     Active Substance: DEXMETHYLPHENIDATE
  6. HYDROXYZINE [Concomitant]
     Active Substance: HYDROXYZINE HYDROCHLORIDE
  7. FOCALIN [Suspect]
     Active Substance: DEXMETHYLPHENIDATE HYDROCHLORIDE
  8. DRONABINOL [Suspect]
     Active Substance: DRONABINOL

REACTIONS (15)
  - Psychotic disorder [None]
  - Depression [None]
  - Sleep disorder [None]
  - Paranoia [None]
  - Illusion [None]
  - Insomnia [None]
  - Disturbance in attention [None]
  - Irritability [None]
  - Tachyphrenia [None]
  - Separation anxiety disorder [None]
  - Nausea [None]
  - Dizziness [None]
  - Fatigue [None]
  - Paraesthesia [None]
  - Drug interaction [None]
